FAERS Safety Report 10275524 (Version 1)
Quarter: 2014Q2

REPORT INFORMATION
  Report Type: Spontaneous
  Country: US (occurrence: None)
  Receive Date: 20140630
  Receipt Date: 20140630
  Transmission Date: 20141212
  Serious: Yes (Life-Threatening, Disabling)
  Sender: FDA-Public Use
  Company Number: None

PATIENT
  Sex: Female

DRUGS (1)
  1. LISINOPRIL [Suspect]
     Indication: HYPERTENSION
     Route: 048

REACTIONS (10)
  - Hyperhidrosis [None]
  - Heart rate irregular [None]
  - Tachycardia [None]
  - Decreased appetite [None]
  - Paraesthesia [None]
  - Chest pain [None]
  - Diarrhoea [None]
  - Tremor [None]
  - Headache [None]
  - Dysphonia [None]
